FAERS Safety Report 7384560-7 (Version None)
Quarter: 2011Q1

REPORT INFORMATION
  Report Type: 
  Country: None (occurrence: None)
  Receive Date: 20110330
  Receipt Date: 20110303
  Transmission Date: 20110831
  Serious: No
  Sender: FDA-Public Use
  Company Number: US-B.I. PHARMACEUTICALS,INC./RIDGEFIELD-2011-BP-06292BP

PATIENT
  Sex: Female

DRUGS (2)
  1. LEXOPRIL [Concomitant]
  2. PRADAXA [Suspect]

REACTIONS (1)
  - BURNING SENSATION [None]
